FAERS Safety Report 4489580-8 (Version None)
Quarter: 2004Q4

REPORT INFORMATION
  Report Type: 
  Country: None (occurrence: None)
  Receive Date: 20041026
  Receipt Date: 20041011
  Transmission Date: 20050328
  Serious: Yes (Other)
  Sender: FDA-Public Use
  Company Number: FR_041004982

PATIENT
  Age: 75 Year
  Sex: Male

DRUGS (2)
  1. CELANCE (PERGOLIDE MESYLATE) [Suspect]
     Indication: PARKINSON'S DISEASE
     Dosage: 3 MG DAY
  2. MODOPAR [Concomitant]

REACTIONS (2)
  - DYSPNOEA [None]
  - MITRAL VALVE DISEASE [None]
